FAERS Safety Report 13621202 (Version 1)
Quarter: 2017Q2

REPORT INFORMATION
  Report Type: Spontaneous
  Country: BR (occurrence: BR)
  Receive Date: 20170607
  Receipt Date: 20170607
  Transmission Date: 20170830
  Serious: Yes (Other)
  Sender: FDA-Public Use
  Company Number: BR-BIOMARINAP-BR-2017-114241

PATIENT
  Age: 22 Year
  Sex: Male
  Weight: 66 kg

DRUGS (1)
  1. ALDURAZYME [Suspect]
     Active Substance: LARONIDASE
     Indication: MUCOPOLYSACCHARIDOSIS I
     Dosage: UNK UNK, QW
     Route: 042
     Dates: start: 20100101

REACTIONS (7)
  - Deafness unilateral [Unknown]
  - Secretion discharge [Unknown]
  - Adenoidal disorder [Unknown]
  - Anaesthetic complication [Unknown]
  - Ear haemorrhage [Unknown]
  - Inflammation [Unknown]
  - Corneal opacity [Unknown]

NARRATIVE: CASE EVENT DATE: 20170419
